FAERS Safety Report 6828365-1 (Version None)
Quarter: 2010Q3

REPORT INFORMATION
  Report Type: 
  Country: None (occurrence: None)
  Receive Date: 20100709
  Receipt Date: 20070207
  Transmission Date: 20110219
  Serious: Yes (Other)
  Sender: FDA-Public Use
  Company Number: US-PFIZER INC-2007010700

PATIENT
  Sex: Male
  Weight: 75.8 kg

DRUGS (2)
  1. CHANTIX [Suspect]
     Indication: SMOKING CESSATION THERAPY
     Dates: start: 20070121
  2. COUMADIN [Concomitant]
     Indication: CARDIAC VALVE DISEASE

REACTIONS (1)
  - ATRIAL FIBRILLATION [None]
